FAERS Safety Report 21395127 (Version 2)
Quarter: 2022Q4

REPORT INFORMATION
  Report Type: Spontaneous
  Country: US (occurrence: US)
  Receive Date: 20220930
  Receipt Date: 20221007
  Transmission Date: 20230112
  Serious: No
  Sender: FDA-Public Use
  Company Number: US-UNITED THERAPEUTICS-UNT-2022-021857

PATIENT
  Sex: Male
  Weight: 74.376 kg

DRUGS (2)
  1. REMODULIN [Suspect]
     Active Substance: TREPROSTINIL
     Indication: Pulmonary arterial hypertension
     Dosage: UNK, CONTINUING
     Route: 058
     Dates: start: 20220506
  2. REMODULIN [Suspect]
     Active Substance: TREPROSTINIL
     Dosage: 0.040 ?G/KG, CONTINUING (PREFILLED WITH 2 ML/CASSETTE; PUMP RATE 20 MCL/HOUR)
     Route: 058
     Dates: start: 2022

REACTIONS (5)
  - Device failure [Unknown]
  - Device infusion issue [Recovered/Resolved]
  - Infusion site infection [Unknown]
  - Device infusion issue [Unknown]
  - Infusion site urticaria [Unknown]

NARRATIVE: CASE EVENT DATE: 20220101
